FAERS Safety Report 4603952-X (Version None)
Quarter: 2005Q1

REPORT INFORMATION
  Report Type: 
  Country: None (occurrence: None)
  Receive Date: 20050310
  Receipt Date: 20050302
  Transmission Date: 20050727
  Serious: Yes (Other)
  Sender: FDA-Public Use
  Company Number: GB-GLAXOSMITHKLINE-B0373865A

PATIENT
  Sex: Female

DRUGS (2)
  1. AVANDIA [Suspect]
     Indication: DIABETES MELLITUS NON-INSULIN-DEPENDENT
  2. GLICLAZIDE [Concomitant]

REACTIONS (3)
  - DIABETIC NEUROPATHY [None]
  - GLOSSODYNIA [None]
  - ORAL DISCOMFORT [None]
